FAERS Safety Report 9516518 (Version 2)
Quarter: 2013Q3

REPORT INFORMATION
  Report Type: Spontaneous
  Country: JP (occurrence: JP)
  Receive Date: 20130911
  Receipt Date: 20130930
  Transmission Date: 20140515
  Serious: Yes (Hospitalization, Other)
  Sender: FDA-Public Use
  Company Number: PHHY2013JP094877

PATIENT
  Age: 52 Year
  Sex: Female

DRUGS (4)
  1. CERTICAN [Suspect]
     Indication: PROPHYLAXIS AGAINST TRANSPLANT REJECTION
     Dosage: 3 MG, UNK
     Route: 048
  2. CERTICAN [Suspect]
     Dosage: 1.5 MG, UNK
     Route: 048
     Dates: end: 20130830
  3. NEORAL [Suspect]
     Indication: PROPHYLAXIS AGAINST TRANSPLANT REJECTION
     Dosage: 30 MG, UNK
     Route: 048
  4. MEDROL [Concomitant]
     Dosage: 20 MG, UNK
     Route: 048
     Dates: start: 20130830

REACTIONS (3)
  - Interstitial lung disease [Recovered/Resolved]
  - Dyspnoea [Recovered/Resolved]
  - Breast cancer [Recovered/Resolved]
